FAERS Safety Report 6323688-7 (Version None)
Quarter: 2009Q3

REPORT INFORMATION
  Report Type: 
  Country: None (occurrence: None)
  Receive Date: 20090824
  Receipt Date: 20090611
  Transmission Date: 20100115
  Serious: No
  Sender: FDA-Public Use
  Company Number: US-ABBOTT-09P-163-0578639-00

PATIENT
  Sex: Female
  Weight: 62.652 kg

DRUGS (6)
  1. NIASPAN [Suspect]
     Indication: LOW DENSITY LIPOPROTEIN INCREASED
     Route: 048
     Dates: start: 20070101
  2. TOPROL-XL [Concomitant]
     Indication: HYPERTENSION
  3. ZESTRIL [Concomitant]
     Indication: BLOOD PRESSURE DIASTOLIC INCREASED
  4. ESTRIOL [Concomitant]
     Indication: HORMONE REPLACEMENT THERAPY
  5. PHYTO NUTRIENTS [Concomitant]
     Indication: PROPHYLAXIS
     Dosage: 50 PILLS TAKEN A DAY
  6. PROGESTERONE [Concomitant]
     Indication: BLOOD OESTROGEN DECREASED

REACTIONS (1)
  - INSOMNIA [None]
